FAERS Safety Report 10165025 (Version 1)
Quarter: 2014Q2

REPORT INFORMATION
  Report Type: Spontaneous
  Country: US (occurrence: US)
  Receive Date: 20140510
  Receipt Date: 20140510
  Transmission Date: 20141212
  Serious: No
  Sender: FDA-Public Use
  Company Number: US-BRISTOL-MYERS SQUIBB COMPANY-20230207

PATIENT
  Age: 64 Year
  Sex: Male

DRUGS (3)
  1. BYDUREON [Suspect]
  2. DIOVAN [Concomitant]
  3. VITAMIN D [Concomitant]

REACTIONS (4)
  - Injection site nodule [Unknown]
  - Injection site swelling [Unknown]
  - Injection site discolouration [Unknown]
  - Injection site pruritus [Unknown]
